FAERS Safety Report 8841870 (Version 1)
Quarter: 2012Q4

REPORT INFORMATION
  Report Type: Spontaneous
  Country: US (occurrence: None)
  Receive Date: 20121015
  Receipt Date: 20121015
  Transmission Date: 20130627
  Serious: Yes (Disabling, Other)
  Sender: FDA-Public Use
  Company Number: None

PATIENT
  Age: 59 Year
  Sex: Female
  Weight: 54.89 kg

DRUGS (2)
  1. LEVOFLOXACIN [Suspect]
     Indication: SALMONELLA
     Route: 042
     Dates: start: 20120724
  2. LEVOFLOXACIN [Suspect]
     Indication: CAMPYLOBACTER INFECTION
     Route: 042
     Dates: start: 20120724

REACTIONS (3)
  - Tendon injury [None]
  - Joint swelling [None]
  - Orthosis user [None]
